FAERS Safety Report 9993851 (Version 1)
Quarter: 2014Q1

REPORT INFORMATION
  Report Type: Spontaneous
  Country: US (occurrence: US)
  Receive Date: 20140310
  Receipt Date: 20140310
  Transmission Date: 20141002
  Serious: No
  Sender: FDA-Public Use
  Company Number: US-AMGEN-USASP2014012556

PATIENT
  Age: 77 Year
  Sex: Female

DRUGS (3)
  1. SENSIPAR [Suspect]
     Indication: HYPERPARATHYROIDISM SECONDARY
     Dosage: 30 MG, QD
     Route: 065
  2. SENSIPAR [Suspect]
     Dosage: 30 MG,  4 DAYS A WEEK
     Route: 065
  3. SENSIPAR [Suspect]
     Dosage: 60 MG  3 DAYS PER WEEK
     Route: 065

REACTIONS (2)
  - Nausea [Not Recovered/Not Resolved]
  - Vomiting [Unknown]
